FAERS Safety Report 12153177 (Version 1)
Quarter: 2016Q1

REPORT INFORMATION
  Report Type: Spontaneous
  Country: US (occurrence: US)
  Receive Date: 20160305
  Receipt Date: 20160305
  Transmission Date: 20160526
  Serious: No
  Sender: FDA-Public Use
  Company Number: US-TEVA-640714USA

PATIENT
  Sex: Female

DRUGS (1)
  1. PROAIR HFA [Suspect]
     Active Substance: ALBUTEROL SULFATE

REACTIONS (5)
  - Headache [Unknown]
  - Nausea [Unknown]
  - Dizziness [Unknown]
  - Vertigo [Unknown]
  - Vision blurred [Unknown]

NARRATIVE: CASE EVENT DATE: 20160224
